FAERS Safety Report 9787616 (Version 1)
Quarter: 2013Q4

REPORT INFORMATION
  Report Type: Spontaneous
  Country: CH (occurrence: None)
  Receive Date: 20131226
  Receipt Date: 20131226
  Transmission Date: 20140711
  Serious: Yes (Hospitalization, Other)
  Sender: FDA-Public Use
  Company Number: AXC-2013-000668

PATIENT
  Age: 29 Year
  Sex: Female

DRUGS (7)
  1. URSODEOXYCHOLIC ACID [Suspect]
     Indication: PRODUCT USED FOR UNKNOWN INDICATION
  2. ELTROXIN [Suspect]
     Indication: HYPOTHYROIDISM
  3. BUSCOPAN [Suspect]
     Indication: PRODUCT USED FOR UNKNOWN INDICATION
     Dates: start: 20130510
  4. FRAGMIN [Suspect]
     Indication: PRODUCT USED FOR UNKNOWN INDICATION
     Dosage: 5000 USP, QD, UNKNOWN
     Dates: start: 20130607, end: 20130609
  5. MAGNESIOCARD [Suspect]
     Indication: PRODUCT USED FOR UNKNOWN INDICATION
     Dates: start: 20130610
  6. ADALAT CR [Suspect]
     Indication: GESTATIONAL HYPERTENSION
     Dates: start: 20130607, end: 20130610
  7. GYNO-TARDYFERON (ASCORBIC ACID, FERROUS SULFATE, FOLIC ACID, PROTEASE) [Concomitant]

REACTIONS (3)
  - Vaginal haemorrhage [None]
  - Gestational hypertension [None]
  - Exposure during pregnancy [None]
